FAERS Safety Report 9849460 (Version 1)
Quarter: 2014Q1

REPORT INFORMATION
  Report Type: Spontaneous
  Country: US (occurrence: None)
  Receive Date: 20140124
  Receipt Date: 20140124
  Transmission Date: 20141002
  Serious: No
  Sender: FDA-Public Use
  Company Number: None

PATIENT
  Age: 73 Year
  Sex: Male
  Weight: 90.72 kg

DRUGS (3)
  1. TRAMADOL HCL [Suspect]
     Route: 048
     Dates: start: 20131211, end: 20131218
  2. PLAVIX [Concomitant]
  3. LIPITOR [Concomitant]

REACTIONS (2)
  - Muscle twitching [None]
  - Hiccups [None]
